FAERS Safety Report 8408251-6 (Version None)
Quarter: 2012Q2

REPORT INFORMATION
  Report Type: 
  Country: None (occurrence: None)
  Receive Date: 20120604
  Receipt Date: 20120523
  Transmission Date: 20120825
  Serious: Yes (Other)
  Sender: FDA-Public Use
  Company Number: CA-GLAXOSMITHKLINE-A0979714A

PATIENT

DRUGS (1)
  1. NICODERM CQ [Suspect]
     Route: 062

REACTIONS (2)
  - DIZZINESS [None]
  - ANGINA PECTORIS [None]
